FAERS Safety Report 4816623-1 (Version None)
Quarter: 2005Q4

REPORT INFORMATION
  Report Type: 
  Country: None (occurrence: None)
  Receive Date: 20051031
  Receipt Date: 20051031
  Transmission Date: 20060501
  Serious: Yes (Other)
  Sender: FDA-Public Use
  Company Number: None

PATIENT
  Age: 53 Year
  Sex: Female
  Weight: 61.2356 kg

DRUGS (4)
  1. OXYCONTIN [Suspect]
     Indication: ARTHRITIS
     Dosage: BID
     Dates: start: 20040129
  2. OXYCONTIN [Suspect]
     Indication: MUSCLE SPASMS
     Dosage: BID
     Dates: start: 20040129
  3. OXYCONTIN [Suspect]
     Indication: ARTHRITIS
     Dosage: QD AT LUNCH
  4. OXYCONTIN [Suspect]
     Indication: MUSCLE SPASMS
     Dosage: QD AT LUNCH

REACTIONS (2)
  - DRUG EFFECT DECREASED [None]
  - THERAPEUTIC RESPONSE UNEXPECTED WITH DRUG SUBSTITUTION [None]
